FAERS Safety Report 7321644-3 (Version None)
Quarter: 2011Q1

REPORT INFORMATION
  Report Type: 
  Country: None (occurrence: None)
  Receive Date: 20110228
  Receipt Date: 20101023
  Transmission Date: 20110831
  Serious: No
  Sender: FDA-Public Use
  Company Number: A0889621A

PATIENT

DRUGS (1)
  1. VALTREX [Suspect]
     Indication: HERPES VIRUS INFECTION
     Route: 065

REACTIONS (2)
  - DRUG INEFFECTIVE [None]
  - PAIN [None]
